FAERS Safety Report 8247132-8 (Version None)
Quarter: 2012Q1

REPORT INFORMATION
  Report Type: 
  Country: None (occurrence: None)
  Receive Date: 20120330
  Receipt Date: 20120322
  Transmission Date: 20120608
  Serious: Yes (Hospitalization)
  Sender: FDA-Public Use
  Company Number: IT-ROCHE-1051509

PATIENT
  Age: 57 Year
  Sex: Male

DRUGS (3)
  1. BOCEPREVIR [Concomitant]
     Route: 048
     Dates: start: 20111011, end: 20120315
  2. PEGASYS [Suspect]
     Indication: HEPATITIS C
     Route: 058
     Dates: start: 20110912, end: 20120315
  3. COPEGUS [Concomitant]
     Route: 048
     Dates: start: 20110912, end: 20120315

REACTIONS (3)
  - UNEVALUABLE EVENT [None]
  - ANAEMIA [None]
  - CONVULSION [None]
